FAERS Safety Report 8011412-1 (Version None)
Quarter: 2011Q4

REPORT INFORMATION
  Report Type: 
  Country: None (occurrence: None)
  Receive Date: 20111228
  Receipt Date: 20111219
  Transmission Date: 20120403
  Serious: Yes (Death)
  Sender: FDA-Public Use
  Company Number: US-PFIZER INC-2011309012

PATIENT
  Age: 49 Year
  Sex: Male

DRUGS (3)
  1. OXYCODONE HCL [Suspect]
  2. FENTANYL [Suspect]
     Route: 062
  3. LIDOCAINE HYDROCHLORIDE [Suspect]

REACTIONS (1)
  - DEATH [None]
